FAERS Safety Report 10073898 (Version 1)
Quarter: 2014Q2

REPORT INFORMATION
  Report Type: Report from Study
  Country: US (occurrence: US)
  Receive Date: 20140412
  Receipt Date: 20140412
  Transmission Date: 20141212
  Serious: No
  Sender: FDA-Public Use
  Company Number: PHEH2014US006922

PATIENT
  Age: 51 Year
  Sex: Male

DRUGS (11)
  1. TASIGNA [Suspect]
     Indication: CHRONIC MYELOID LEUKAEMIA
     Dosage: 300 MG, BID
     Route: 048
     Dates: start: 20121012
  2. ALLEGRA [Concomitant]
     Dosage: UNK UKN, UNK
  3. LEVEMIR [Concomitant]
     Dosage: UNK UKN, UNK
  4. NOVOLOG [Concomitant]
     Dosage: UNK UKN, UNK
  5. CRESTOR [Concomitant]
  6. JANUMET [Concomitant]
     Dosage: UNK UKN, UNK
  7. SERTRALINE [Concomitant]
     Dosage: UNK UKN, UNK
  8. LOPRESSOR [Concomitant]
     Dosage: UNK UKN, UNK
  9. NORVASC [Concomitant]
     Dosage: UNK UKN, UNK
  10. WELLBUTRIN [Concomitant]
     Dosage: UNK UKN, UNK
  11. LISINOPRIL AND HYDROCHLOROTHIAZIDE [Concomitant]
     Dosage: UNK UKN, UNK

REACTIONS (1)
  - Choking [Recovering/Resolving]
